FAERS Safety Report 4889640-3 (Version None)
Quarter: 2006Q1

REPORT INFORMATION
  Report Type: 
  Country: None (occurrence: None)
  Receive Date: 20060124
  Receipt Date: 20060118
  Transmission Date: 20060701
  Serious: Yes (Disabling, Other)
  Sender: FDA-Public Use
  Company Number: GB-GLAXOSMITHKLINE-B0407069A

PATIENT
  Age: 25 Year
  Sex: Male
  Weight: 71 kg

DRUGS (2)
  1. KIVEXA [Suspect]
     Route: 048
     Dates: start: 20051124
  2. SUSTIVA [Concomitant]
     Dosage: 600MG PER DAY
     Route: 048
     Dates: start: 20051124

REACTIONS (5)
  - BLOOD CREATININE INCREASED [None]
  - BLOOD POTASSIUM INCREASED [None]
  - BLOOD UREA INCREASED [None]
  - CONDITION AGGRAVATED [None]
  - RENAL IMPAIRMENT [None]
